FAERS Safety Report 24997939 (Version 3)
Quarter: 2025Q1

REPORT INFORMATION
  Report Type: Spontaneous
  Country: US (occurrence: US)
  Receive Date: 20250222
  Receipt Date: 20250308
  Transmission Date: 20250408
  Serious: Yes (Other)
  Sender: SANOFI AVENTIS
  Company Number: US-SA-2025SA043950

PATIENT
  Age: 21 Year
  Sex: Female
  Weight: 59.09 kg

DRUGS (4)
  1. DUPIXENT [Suspect]
     Active Substance: DUPILUMAB
     Indication: Dermatitis atopic
     Dosage: 300 MG, QOW
     Route: 058
     Dates: start: 2021
  2. DUPIXENT [Suspect]
     Active Substance: DUPILUMAB
     Dosage: 300 MG, QOW
     Route: 058
     Dates: start: 202205, end: 20230110
  3. TRIAMCINOLONE [Concomitant]
     Active Substance: TRIAMCINOLONE
     Indication: Dermatitis atopic
  4. CLOBETASOL [Concomitant]
     Active Substance: CLOBETASOL
     Indication: Dermatitis atopic

REACTIONS (6)
  - Squamous cell carcinoma [Unknown]
  - Eczema [Unknown]
  - Alopecia [Unknown]
  - Dry eye [Recovering/Resolving]
  - Exposure during pregnancy [Unknown]
  - Genital herpes [Unknown]

NARRATIVE: CASE EVENT DATE: 20220123
